FAERS Safety Report 9601762 (Version 1)
Quarter: 2013Q4

REPORT INFORMATION
  Report Type: Spontaneous
  Country: TR (occurrence: None)
  Receive Date: 20131002
  Receipt Date: 20131002
  Transmission Date: 20140711
  Serious: Yes (Hospitalization, Other)
  Sender: FDA-Public Use
  Company Number: NSR_01253_2013

PATIENT
  Age: 31 Year
  Sex: Female

DRUGS (2)
  1. LAMOTRIGINE [Suspect]
     Indication: IDIOPATHIC GENERALISED EPILEPSY
     Route: 048
  2. VALPROIC ACID [Suspect]
     Indication: IDIOPATHIC GENERALISED EPILEPSY
     Dosage: 500 / DAY, (1500 MG, / DAY [GRADUALLY INCREASED ], (1000 MG, / DAY [PRIOR TO THERAPY WITH LTG] )  UNKKNOWN THERAPY UNITL NOT CONTINUING

REACTIONS (3)
  - Weight increased [None]
  - Alopecia [None]
  - Convulsion [None]
